FAERS Safety Report 7111358-7 (Version None)
Quarter: 2010Q4

REPORT INFORMATION
  Report Type: 
  Country: None (occurrence: None)
  Receive Date: 20101118
  Receipt Date: 20101109
  Transmission Date: 20110411
  Serious: Yes (Other)
  Sender: FDA-Public Use
  Company Number: PHHY2010US37666

PATIENT
  Sex: Female
  Weight: 60.317 kg

DRUGS (5)
  1. SANDOSTATIN LAR [Suspect]
     Indication: CARCINOID SYNDROME
     Dosage: UNK
     Dates: start: 20100301, end: 20100524
  2. ASPIRIN [Concomitant]
     Dosage: 325 MG, DAILY
     Route: 048
     Dates: start: 20100125, end: 20100421
  3. LISINOPRIL [Concomitant]
     Dosage: 10 MG, DAILY
     Route: 048
     Dates: start: 20100125
  4. ZOLOFT [Concomitant]
     Indication: DEPRESSION
     Dosage: 100 MG DAILY
     Route: 048
  5. AMBIEN [Concomitant]
     Indication: INSOMNIA
     Dosage: 5 MG, QHS
     Dates: start: 20101025

REACTIONS (6)
  - ABDOMINAL DISTENSION [None]
  - COLITIS [None]
  - DRY MOUTH [None]
  - GINGIVAL PAIN [None]
  - GINGIVAL RECESSION [None]
  - HYPOAESTHESIA [None]
